FAERS Safety Report 4423499-3 (Version None)
Quarter: 2004Q3

REPORT INFORMATION
  Report Type: 
  Country: None (occurrence: None)
  Receive Date: 20040806
  Receipt Date: 20040802
  Transmission Date: 20050211
  Serious: Yes (Death)
  Sender: FDA-Public Use
  Company Number: 200410414BFR

PATIENT
  Age: 52 Year
  Sex: Male

DRUGS (4)
  1. IZILOX (MOXIFLOXACIN HYDROCHLORIDE) [Suspect]
     Indication: BRONCHITIS ACUTE
     Dosage: 400 MG, TOTAL DAILY, ORAL
     Route: 048
     Dates: start: 20040616, end: 20040618
  2. CELECTOL [Concomitant]
  3. ISOPTIN [Concomitant]
  4. PRAVASTATIN [Concomitant]

REACTIONS (5)
  - BRADYCARDIA [None]
  - FALL [None]
  - SUDDEN DEATH [None]
  - SYNCOPE [None]
  - TORSADE DE POINTES [None]
